FAERS Safety Report 17244307 (Version 2)
Quarter: 2020Q1

REPORT INFORMATION
  Report Type: Spontaneous
  Country: US (occurrence: US)
  Receive Date: 20200107
  Receipt Date: 20200330
  Transmission Date: 20200409
  Serious: Yes (Other)
  Sender: FDA-Public Use
  Company Number: US-GILEAD-2019-0444766

PATIENT
  Age: 46 Year
  Sex: Female

DRUGS (58)
  1. ISENTRESS [Concomitant]
     Active Substance: RALTEGRAVIR POTASSIUM
  2. FAMOTIDINE. [Concomitant]
     Active Substance: FAMOTIDINE
  3. NABUMETONE. [Concomitant]
     Active Substance: NABUMETONE
  4. GUAIFENESIN + CODEINE [Concomitant]
  5. POLYSACCHARIDE IRON [Concomitant]
  6. FERROUS SULFATE. [Concomitant]
     Active Substance: FERROUS SULFATE
  7. LORAZEPAM. [Concomitant]
     Active Substance: LORAZEPAM
  8. COMBIVENT [Concomitant]
     Active Substance: ALBUTEROL SULFATE\IPRATROPIUM BROMIDE
  9. IMIPRAMINE [Concomitant]
     Active Substance: IMIPRAMINE
  10. VOLTAREN [DICLOFENAC] [Concomitant]
     Active Substance: DICLOFENAC SODIUM
  11. NAPROXEN. [Concomitant]
     Active Substance: NAPROXEN
  12. VITAMIN D2 [Concomitant]
     Active Substance: ERGOCALCIFEROL
  13. TRAMADOL + ACETAMINOFEN [Concomitant]
     Active Substance: ACETAMINOPHEN\TRAMADOL
  14. OXYCODONE HYDROCHLORIDE. [Concomitant]
     Active Substance: OXYCODONE HYDROCHLORIDE
  15. ALBUTEROL SULFATE. [Concomitant]
     Active Substance: ALBUTEROL SULFATE
  16. REYATAZ [Concomitant]
     Active Substance: ATAZANAVIR SULFATE
  17. NORVIR [Concomitant]
     Active Substance: RITONAVIR
  18. CLARITHROMYCIN. [Concomitant]
     Active Substance: CLARITHROMYCIN
  19. TRUVADA [Suspect]
     Active Substance: EMTRICITABINE\TENOFOVIR DISOPROXIL FUMARATE
     Indication: HIV INFECTION
     Dosage: UNK
     Route: 048
     Dates: start: 200901, end: 201501
  20. LEVETIRACETAM. [Concomitant]
     Active Substance: LEVETIRACETAM
  21. TRIUMEQ [Concomitant]
     Active Substance: ABACAVIR SULFATE\DOLUTEGRAVIR SODIUM\LAMIVUDINE
  22. CLINDAMYCIN. [Concomitant]
     Active Substance: CLINDAMYCIN
  23. VENLAFAXINE HCL [Concomitant]
     Active Substance: VENLAFAXINE HYDROCHLORIDE
  24. CYANOCOBALAMIN. [Concomitant]
     Active Substance: CYANOCOBALAMIN
  25. PROAIR HFA [Concomitant]
     Active Substance: ALBUTEROL SULFATE
  26. PROCRIT [Concomitant]
     Active Substance: ERYTHROPOIETIN
  27. ALPRAZOLAM. [Concomitant]
     Active Substance: ALPRAZOLAM
  28. CYCLOBENZAPRINE. [Concomitant]
     Active Substance: CYCLOBENZAPRINE
  29. ATRIPLA [Suspect]
     Active Substance: EFAVIRENZ\EMTRICITABINE\TENOFOVIR DISOPROXIL FUMARATE
     Indication: HIV INFECTION
     Dosage: UNK
     Route: 048
     Dates: start: 200601, end: 200701
  30. GENVOYA [Concomitant]
     Active Substance: COBICISTAT\ELVITEGRAVIR\EMTRICITABINE\TENOFOVIR ALAFENAMIDE FUMARATE
  31. LEUCOVORIN CALCIUM. [Concomitant]
     Active Substance: LEUCOVORIN CALCIUM
  32. INSULIN [Concomitant]
     Active Substance: INSULIN NOS
  33. BUSPIRONE HCL [Concomitant]
     Active Substance: BUSPIRONE HYDROCHLORIDE
  34. SULFAMETHOXAZOLE AND TRIMETHOPRIM [Concomitant]
     Active Substance: SULFAMETHOXAZOLE\TRIMETHOPRIM
  35. ACYCLOVIR [ACICLOVIR] [Concomitant]
     Active Substance: ACYCLOVIR
  36. OXAPROZIN. [Concomitant]
     Active Substance: OXAPROZIN
  37. MELOXICAM. [Concomitant]
     Active Substance: MELOXICAM
  38. GABAPENTIN. [Concomitant]
     Active Substance: GABAPENTIN
  39. HYDROCODONE BITARTRATE AND ACETAMINOPHEN [Concomitant]
     Active Substance: ACETAMINOPHEN\HYDROCODONE BITARTRATE
  40. NYSTATIN. [Concomitant]
     Active Substance: NYSTATIN
  41. PROMETHAZINE [Concomitant]
     Active Substance: PROMETHAZINE HYDROCHLORIDE
  42. PROVENTIL HFA [Concomitant]
     Active Substance: ALBUTEROL SULFATE
  43. BUTALB/ACET/CAFFEINE [Concomitant]
  44. METHADONE HCL [Concomitant]
     Active Substance: METHADONE HYDROCHLORIDE
  45. ONDANSETRON [Concomitant]
     Active Substance: ONDANSETRON
  46. AZITHROMYCIN ANHYDROUS. [Concomitant]
     Active Substance: AZITHROMYCIN ANHYDROUS
  47. PREDNISONE. [Concomitant]
     Active Substance: PREDNISONE
  48. DARAPRIM [Concomitant]
     Active Substance: PYRIMETHAMINE
  49. SULFADIAZINE. [Concomitant]
     Active Substance: SULFADIAZINE
  50. MORPHINE SULF [Concomitant]
     Active Substance: MORPHINE SULFATE
  51. LIDODERM [Concomitant]
     Active Substance: LIDOCAINE
  52. METHOCARBAMOL. [Concomitant]
     Active Substance: METHOCARBAMOL
  53. SERVAMOX CLV [Concomitant]
  54. CELEBREX [Concomitant]
     Active Substance: CELECOXIB
  55. DOXYCYCLINE. [Concomitant]
     Active Substance: DOXYCYCLINE
  56. METRONIDAZOLE. [Concomitant]
     Active Substance: METRONIDAZOLE
  57. PANTOPRAZOLE SODIUM. [Concomitant]
     Active Substance: PANTOPRAZOLE SODIUM
  58. PYLERA [Concomitant]
     Active Substance: BISMUTH SUBCITRATE POTASSIUM\METRONIDAZOLE\TETRACYCLINE HYDROCHLORIDE

REACTIONS (7)
  - Anxiety [Unknown]
  - Tooth loss [Recovered/Resolved]
  - Anhedonia [Unknown]
  - Pain [Unknown]
  - Osteoporosis [Recovered/Resolved]
  - Economic problem [Unknown]
  - Emotional distress [Unknown]

NARRATIVE: CASE EVENT DATE: 201601
